FAERS Safety Report 20475598 (Version 1)
Quarter: 2022Q1

REPORT INFORMATION
  Report Type: Report from Study
  Country: RU (occurrence: RU)
  Receive Date: 20220215
  Receipt Date: 20220215
  Transmission Date: 20220423
  Serious: Yes (Other)
  Sender: FDA-Public Use
  Company Number: RU-AMGEN-RUSNI2019064531

PATIENT
  Age: 70 Year
  Sex: Female

DRUGS (5)
  1. PANITUMUMAB [Suspect]
     Active Substance: PANITUMUMAB
     Indication: Colorectal cancer metastatic
     Dosage: UNK
     Route: 042
     Dates: start: 20181121
  2. PLATICAD [Concomitant]
     Indication: Colorectal cancer metastatic
     Dosage: UNK
     Dates: start: 201901, end: 201901
  3. PHTHORURACIL [Concomitant]
     Indication: Colorectal cancer metastatic
     Dosage: UNK
     Dates: start: 201901, end: 20190403
  4. OXALIPLATIN [Concomitant]
     Active Substance: OXALIPLATIN
     Indication: Colorectal cancer metastatic
     Dosage: UNK
     Dates: start: 20190320, end: 20190403
  5. LEUCOVORIN [Concomitant]
     Active Substance: LEUCOVORIN
     Indication: Colorectal cancer metastatic
     Dosage: UNK
     Dates: start: 201901, end: 20190320

REACTIONS (2)
  - Neutropenia [Recovered/Resolved]
  - Neutrophil count decreased [Recovered/Resolved]

NARRATIVE: CASE EVENT DATE: 20190313
